FAERS Safety Report 10167865 (Version 3)
Quarter: 2014Q2

REPORT INFORMATION
  Report Type: Report from Study
  Country: US (occurrence: US)
  Receive Date: 20140512
  Receipt Date: 20140528
  Transmission Date: 20141212
  Serious: Yes (Death, Hospitalization)
  Sender: FDA-Public Use
  Company Number: US-GLAXOSMITHKLINE-A1072709A

PATIENT
  Age: 53 Year
  Sex: Female
  Weight: 53.1 kg

DRUGS (7)
  1. BENLYSTA [Suspect]
     Indication: SYSTEMIC LUPUS ERYTHEMATOSUS
     Dosage: 520MG TWO TIMES PER WEEK
     Route: 042
     Dates: start: 20140303
  2. PREDNISONE [Suspect]
     Indication: SYSTEMIC LUPUS ERYTHEMATOSUS
     Dosage: 5MG PER DAY
     Route: 048
     Dates: start: 2012, end: 20140505
  3. NEUPOGEN [Concomitant]
     Indication: AUTOIMMUNE NEUTROPENIA
     Dosage: 300MCG PER DAY
     Route: 058
     Dates: start: 20140410, end: 20140410
  4. NEUPOGEN [Concomitant]
     Indication: AUTOIMMUNE NEUTROPENIA
     Dosage: 300MCG PER DAY
     Route: 058
     Dates: start: 20140412, end: 20140419
  5. NEUPOGEN [Concomitant]
     Indication: AUTOIMMUNE NEUTROPENIA
     Dosage: 480MCG PER DAY
     Route: 058
     Dates: start: 20140419, end: 20140426
  6. NEUPOGEN [Concomitant]
     Indication: AUTOIMMUNE NEUTROPENIA
     Dosage: 300MCG TWICE PER DAY
     Route: 058
     Dates: start: 20140426, end: 20140429
  7. NEUPOGEN [Concomitant]
     Indication: AUTOIMMUNE NEUTROPENIA
     Dosage: 480MCG PER DAY
     Route: 058
     Dates: start: 20140429, end: 20140430

REACTIONS (1)
  - Klebsiella sepsis [Fatal]
